FAERS Safety Report 25793305 (Version 3)
Quarter: 2025Q3

REPORT INFORMATION
  Report Type: Spontaneous
  Country: EU (occurrence: EU)
  Receive Date: 20250911
  Receipt Date: 20250918
  Transmission Date: 20251021
  Serious: Yes (Life-Threatening, Other)
  Sender: MELINTA THERAPEUTICS
  Company Number: None

PATIENT

DRUGS (1)
  1. MEROPENEM\VABORBACTAM [Suspect]
     Active Substance: MEROPENEM\VABORBACTAM
     Indication: Klebsiella infection
     Route: 042
     Dates: start: 20250715, end: 20250723

REACTIONS (1)
  - Epilepsy [Recovered/Resolved]

NARRATIVE: CASE EVENT DATE: 20250723
